FAERS Safety Report 9007150 (Version 2)
Quarter: 2013Q1

REPORT INFORMATION
  Report Type: Spontaneous
  Country: US (occurrence: US)
  Receive Date: 20130110
  Receipt Date: 20130131
  Transmission Date: 20140127
  Serious: No
  Sender: FDA-Public Use
  Company Number: US-PFIZER INC-2013009533

PATIENT
  Age: 63 Year
  Sex: Female
  Weight: 65.76 kg

DRUGS (8)
  1. LYRICA [Suspect]
     Indication: PAIN
     Dosage: 150 MG, 1X/DAY
     Route: 048
     Dates: start: 20130105
  2. PREDNISONE [Concomitant]
     Dosage: UNK
  3. SALAGEN [Concomitant]
     Dosage: UNK
  4. CARDIZEM [Concomitant]
     Indication: ARTERIOSCLEROSIS
     Dosage: UNK
  5. CARDIZEM [Concomitant]
     Indication: ANGINA PECTORIS
  6. PROTONIX [Concomitant]
     Dosage: UNK
  7. NIFEDIPINE [Concomitant]
     Indication: RAYNAUD^S PHENOMENON
     Dosage: UNK
  8. NYSTATIN [Concomitant]
     Dosage: UNK

REACTIONS (5)
  - Vision blurred [Not Recovered/Not Resolved]
  - Pain in extremity [Not Recovered/Not Resolved]
  - Headache [Not Recovered/Not Resolved]
  - Dizziness [Not Recovered/Not Resolved]
  - Drug ineffective [Not Recovered/Not Resolved]
